FAERS Safety Report 9012256 (Version 1)
Quarter: 2013Q1

REPORT INFORMATION
  Report Type: Spontaneous
  Country: CH (occurrence: CH)
  Receive Date: 20130114
  Receipt Date: 20130114
  Transmission Date: 20140127
  Serious: Yes (Hospitalization)
  Sender: FDA-Public Use
  Company Number: CHPA2013CH000927

PATIENT
  Age: 81 Year
  Sex: Female

DRUGS (6)
  1. TAVEGYL [Suspect]
     Indication: PROPHYLAXIS
     Dosage: UNK, UNK
     Route: 042
     Dates: start: 20120912, end: 201211
  2. METOCLOPRAMIDE [Suspect]
     Indication: PROPHYLAXIS
     Dosage: UNK, UNK
     Route: 042
     Dates: start: 20120912, end: 201211
  3. RANITIDINE [Suspect]
     Indication: PROPHYLAXIS
     Dosage: UNK, UNK
     Route: 048
     Dates: start: 20120912, end: 201211
  4. DEXAMETHASONE [Suspect]
     Indication: PROPHYLAXIS
     Dosage: UNK, UNK
     Route: 042
     Dates: start: 20120912, end: 20121129
  5. CARBOPLATINE [Suspect]
     Indication: OVARIAN CANCER
     Dosage: UNK, UNK
     Route: 042
     Dates: start: 20120912, end: 20121112
  6. TAXOL [Suspect]
     Indication: OVARIAN CANCER
     Dosage: UNK, UNK
     Route: 042
     Dates: start: 20120912, end: 20121112

REACTIONS (6)
  - Rash macular [Recovered/Resolved]
  - Pruritus [Recovered/Resolved]
  - Staphylococcal sepsis [Recovered/Resolved]
  - Dermatitis exfoliative [Recovered/Resolved]
  - Chills [Recovered/Resolved]
  - Nausea [Unknown]
